FAERS Safety Report 9219208 (Version 2)
Quarter: 2013Q2

REPORT INFORMATION
  Report Type: Spontaneous
  Country: IT (occurrence: IT)
  Receive Date: 20130409
  Receipt Date: 20130415
  Transmission Date: 20140414
  Serious: Yes (Other)
  Sender: FDA-Public Use
  Company Number: IT-JNJFOC-20130402211

PATIENT
  Age: 77 Year
  Sex: Female

DRUGS (2)
  1. MINOXIDIL [Suspect]
     Route: 061
  2. MINOXIDIL [Suspect]
     Indication: ANDROGENETIC ALOPECIA
     Route: 061

REACTIONS (1)
  - Dermatosis [Recovering/Resolving]
